FAERS Safety Report 9768316 (Version 3)
Quarter: 2014Q2

REPORT INFORMATION
  Report Type: Report from Study
  Country: IL (occurrence: IL)
  Receive Date: 20131217
  Receipt Date: 20140421
  Transmission Date: 20141212
  Serious: Yes (Hospitalization, Other)
  Sender: FDA-Public Use
  Company Number: IL-GILEAD-2013-0089714

PATIENT
  Age: 79 Year
  Sex: Female
  Weight: 78 kg

DRUGS (16)
  1. RANOLAZINE [Suspect]
     Indication: ATRIAL FIBRILLATION
     Dosage: 750 MG, BID
     Route: 048
     Dates: start: 20131128
  2. DRONEDARONE [Suspect]
     Indication: ATRIAL FIBRILLATION
     Dosage: 225 MG, BID
     Route: 048
     Dates: start: 20131128
  3. COUMADIN                           /00014802/ [Suspect]
     Indication: ATRIAL FIBRILLATION
     Dosage: 5 MG, SUN, TUES, THUR, AND SAT
     Route: 048
     Dates: start: 200807, end: 20131210
  4. COUMADIN                           /00014802/ [Suspect]
     Dosage: 2.5 MG, MON, WED, AND FRI
     Dates: start: 200807, end: 20131210
  5. COUMADIN                           /00014802/ [Suspect]
     Dosage: 2.5 MG, QD
     Dates: start: 20131211, end: 20131215
  6. COUMADIN                           /00014802/ [Suspect]
     Dosage: 5 MG, SUN, TUES, THUR, AND SAT
     Dates: start: 20131216
  7. COUMADIN                           /00014802/ [Suspect]
     Dosage: 2.5 UNK, MON, WED, AND FRI
     Route: 048
     Dates: start: 20131216
  8. CARDILOC [Concomitant]
     Indication: ATRIAL FIBRILLATION
     Dosage: UNK
     Dates: start: 201304
  9. RECITAL                            /00582602/ [Concomitant]
     Indication: DEPRESSION
     Dosage: UNK
     Dates: start: 20120101
  10. CONTROLOC                          /01263204/ [Concomitant]
     Indication: DYSPEPSIA
     Dosage: UNK
     Dates: start: 20130901
  11. ENALAPRIL [Concomitant]
     Indication: HYPERTENSION
     Dosage: UNK
     Dates: start: 20090306
  12. FUSID                              /00032601/ [Concomitant]
     Indication: CARDIAC FAILURE CONGESTIVE
     Dosage: UNK
     Dates: start: 2013
  13. SIMVACOR [Concomitant]
     Indication: HYPERLIPIDAEMIA
     Dosage: UNK
     Dates: start: 2011
  14. LORIVAN [Concomitant]
  15. CIPRAMIL                           /00582602/ [Concomitant]
  16. VITAMIN D NOS [Concomitant]

REACTIONS (1)
  - International normalised ratio increased [Recovered/Resolved]
